FAERS Safety Report 14962591 (Version 1)
Quarter: 2018Q2

REPORT INFORMATION
  Report Type: Spontaneous
  Country: US (occurrence: US)
  Receive Date: 20180601
  Receipt Date: 20180601
  Transmission Date: 20180711
  Serious: No
  Sender: FDA-Public Use
  Company Number: US-PFIZER INC-2018223258

PATIENT
  Age: 78 Year
  Sex: Female
  Weight: 56.7 kg

DRUGS (2)
  1. LYRICA [Suspect]
     Active Substance: PREGABALIN
     Indication: NEURALGIA
     Dosage: 50 MG, 2X/DAY
  2. LYRICA [Suspect]
     Active Substance: PREGABALIN
     Dosage: 50 MG, 3X/DAY (1 AT BREAKFAST, LUNCH, AND AT DINNERTIME)
     Route: 048
     Dates: start: 20180507

REACTIONS (1)
  - Memory impairment [Unknown]
